FAERS Safety Report 8568142-7 (Version None)
Quarter: 2012Q3

REPORT INFORMATION
  Report Type: 
  Country: None (occurrence: None)
  Receive Date: 20120803
  Receipt Date: 20120711
  Transmission Date: 20120928
  Serious: No
  Sender: FDA-Public Use
  Company Number: US-ABBOTT-12P-163-0955198-00

PATIENT
  Sex: Male
  Weight: 94.886 kg

DRUGS (2)
  1. OTHER UNKNOWN MEDICATION [Concomitant]
     Indication: PRODUCT USED FOR UNKNOWN INDICATION
  2. NIASPAN [Suspect]
     Indication: BLOOD TRIGLYCERIDES INCREASED
     Dosage: 1 VERY NIGHT
     Dates: start: 20120701

REACTIONS (4)
  - FOLLICULITIS [None]
  - HYPERHIDROSIS [None]
  - FLUSHING [None]
  - RASH [None]
